FAERS Safety Report 6699330-2 (Version None)
Quarter: 2010Q2

REPORT INFORMATION
  Report Type: 
  Country: None (occurrence: None)
  Receive Date: 20100427
  Receipt Date: 20100414
  Transmission Date: 20101027
  Serious: Yes (Disabling, Other)
  Sender: FDA-Public Use
  Company Number: NO-GENENTECH-243119

PATIENT
  Sex: Male
  Weight: 62 kg

DRUGS (2)
  1. BLINDED RANIBIZUMAB [Suspect]
     Indication: MACULAR DEGENERATION
     Dosage: UNK MG, UNKNOWN
     Route: 031
     Dates: start: 20070504
  2. BLINDED SHAM INJECTION [Suspect]
     Indication: MACULAR DEGENERATION
     Dosage: UNK MG, UNKNOWN
     Route: 031
     Dates: start: 20070504

REACTIONS (4)
  - DISEASE PROGRESSION [None]
  - INTRAOCULAR PRESSURE INCREASED [None]
  - IRIS NEOVASCULARISATION [None]
  - RETINAL ARTERY OCCLUSION [None]
